FAERS Safety Report 6085626-4 (Version None)
Quarter: 2009Q1

REPORT INFORMATION
  Report Type: 
  Country: None (occurrence: None)
  Receive Date: 20090220
  Receipt Date: 20090205
  Transmission Date: 20090719
  Serious: Yes (Death, Life-Threatening, Other)
  Sender: FDA-Public Use
  Company Number: GB-AVENTIS-200911261US

PATIENT
  Age: 40 Year
  Sex: Male

DRUGS (9)
  1. GLYBURIDE [Suspect]
     Dosage: DOSE: UNK
  2. RIBAVIRIN [Suspect]
     Dosage: DOSE: 200-1200
  3. EPOGEN [Suspect]
     Dosage: DOSE: UNK
  4. INTERFERON ALFA-2B [Suspect]
     Dosage: DOSE: 1.5-3.0 MILLION
  5. CYCLOSPORINE [Suspect]
     Dosage: DOSE: UNK
  6. SIROLIMUS [Suspect]
     Dosage: DOSE: UNK
  7. PREDNISONE [Suspect]
     Dosage: DOSE: UNK
  8. FILGRASTIM [Concomitant]
     Dosage: DOSE: UNK
  9. AMPHOTERICIN B [Concomitant]
     Dosage: DOSE: UNK
     Route: 042

REACTIONS (7)
  - BLINDNESS [None]
  - HAEMOLYTIC ANAEMIA [None]
  - NEOPLASM MALIGNANT [None]
  - NEUTROPENIA [None]
  - RENAL FAILURE [None]
  - TRANSPLANT REJECTION [None]
  - ZYGOMYCOSIS [None]
